FAERS Safety Report 25660432 (Version 1)
Quarter: 2025Q3

REPORT INFORMATION
  Report Type: Report from Study
  Country: AU (occurrence: AU)
  Receive Date: 20250808
  Receipt Date: 20250808
  Transmission Date: 20251020
  Serious: Yes (Other)
  Sender: UCB
  Company Number: AU-UCBSA-2025048249

PATIENT
  Age: 34 Year
  Sex: Female

DRUGS (2)
  1. ZILUCOPLAN [Suspect]
     Active Substance: ZILUCOPLAN
     Indication: Myasthenia gravis
     Dates: start: 20250716
  2. PENICILLIN [Concomitant]
     Active Substance: PENICILLIN
     Indication: Product used for unknown indication

REACTIONS (3)
  - Tunnel vision [Recovered/Resolved]
  - Gait disturbance [Recovered/Resolved]
  - Paraesthesia [Recovered/Resolved]

NARRATIVE: CASE EVENT DATE: 20250803
